FAERS Safety Report 16067064 (Version 2)
Quarter: 2019Q2

REPORT INFORMATION
  Report Type: Spontaneous
  Country: US (occurrence: US)
  Receive Date: 20190313
  Receipt Date: 20190507
  Transmission Date: 20190711
  Serious: Yes (Hospitalization, Other)
  Sender: FDA-Public Use
  Company Number: US-GLAXOSMITHKLINE-US2019042962

PATIENT
  Age: 27 Year
  Sex: Female
  Weight: 68.93 kg

DRUGS (3)
  1. CELLCEPT [Concomitant]
     Active Substance: MYCOPHENOLATE MOFETIL\MYCOPHENOLATE MOFETIL HYDROCHLORIDE
  2. MINOXIDIL. [Concomitant]
     Active Substance: MINOXIDIL
  3. BENLYSTA [Suspect]
     Active Substance: BELIMUMAB
     Indication: SYSTEMIC LUPUS ERYTHEMATOSUS
     Dosage: UNK UNK, U
     Dates: start: 20181212

REACTIONS (15)
  - Haemoglobin decreased [Unknown]
  - Ejection fraction [Unknown]
  - Renal impairment [Unknown]
  - Dyspnoea [Unknown]
  - Autoimmune disorder [Unknown]
  - Proteinuria [Unknown]
  - Metabolic acidosis [Unknown]
  - Pain [Unknown]
  - Hypoxia [Unknown]
  - Pericardial effusion [Unknown]
  - Blood creatinine increased [Unknown]
  - Urinary tract infection [Unknown]
  - Cardiac failure congestive [Unknown]
  - Hypertension [Unknown]
  - Chronic kidney disease [Unknown]

NARRATIVE: CASE EVENT DATE: 20190218
